FAERS Safety Report 23481353 (Version 1)
Quarter: 2024Q1

REPORT INFORMATION
  Report Type: Spontaneous
  Country: US (occurrence: None)
  Receive Date: 20240202
  Receipt Date: 20240202
  Transmission Date: 20240410
  Serious: Yes (Other)
  Sender: FDA-Public Use
  Company Number: None

PATIENT
  Age: 10 Year
  Sex: Male

DRUGS (20)
  1. GENOTROPIN [Suspect]
     Active Substance: SOMATROPIN
     Indication: Hypopituitarism
     Dosage: 5 MG SUBCUTANEOUS??INJECT 1 MG UNDER THE SKIN (SUBCUTANEOUS INJECTION) DAILY
     Route: 058
     Dates: start: 20230324
  2. ACYCLOVIR CRE [Concomitant]
  3. CLARITIN CHW [Concomitant]
  4. DIAZEPAM [Concomitant]
     Active Substance: DIAZEPAM
  5. ENOXAPARIN [Concomitant]
     Active Substance: ENOXAPARIN
  6. FAMOTIDINE [Concomitant]
     Active Substance: FAMOTIDINE
  7. FLUTICASONE SPR [Concomitant]
  8. FOLIC ACID [Concomitant]
     Active Substance: FOLIC ACID
  9. GABAPENTIN [Concomitant]
     Active Substance: GABAPENTIN
  10. HYDROXYZINE HYDROCHLORIDE [Concomitant]
     Active Substance: HYDROXYZINE HYDROCHLORIDE
  11. LOVENOX [Concomitant]
     Active Substance: ENOXAPARIN SODIUM
  12. METHOCARBAMOL [Concomitant]
     Active Substance: METHOCARBAMOL
  13. NORDITROPIN [Concomitant]
     Active Substance: SOMATROPIN
  14. OXYCODONE [Concomitant]
     Active Substance: OXYCODONE\OXYCODONE HYDROCHLORIDE
  15. PREDNISOLONE SOL [Concomitant]
  16. PREDNISONE [Concomitant]
     Active Substance: PREDNISONE
  17. TACROLIMUS [Concomitant]
     Active Substance: TACROLIMUS
  18. TACROLIMUS [Concomitant]
     Active Substance: TACROLIMUS
  19. TACROLIMUS OIN [Concomitant]
  20. VALACYCLOVIR [Concomitant]
     Active Substance: VALACYCLOVIR HYDROCHLORIDE

REACTIONS (2)
  - Brain operation [None]
  - Therapy interrupted [None]

NARRATIVE: CASE EVENT DATE: 20240130
